FAERS Safety Report 5153341-7 (Version None)
Quarter: 2006Q4

REPORT INFORMATION
  Report Type: 
  Country: None (occurrence: None)
  Receive Date: 20061117
  Receipt Date: 20060125
  Transmission Date: 20070319
  Serious: Yes (Hospitalization)
  Sender: FDA-Public Use
  Company Number: US-ROCHE-433857

PATIENT
  Age: 25 Year
  Sex: Male
  Weight: 77.1 kg

DRUGS (1)
  1. ACCUTANE [Suspect]
     Indication: ACNE
     Route: 048
     Dates: start: 19910201, end: 19910815

REACTIONS (22)
  - AGGRESSION [None]
  - ANXIETY [None]
  - CARTILAGE INJURY [None]
  - COLITIS ULCERATIVE [None]
  - CROHN'S DISEASE [None]
  - DEPRESSION [None]
  - DERMAL CYST [None]
  - ERECTILE DYSFUNCTION [None]
  - FLIGHT OF IDEAS [None]
  - HAEMORRHOIDS [None]
  - HEPATITIS A ANTIBODY [None]
  - IMPINGEMENT SYNDROME [None]
  - INFLAMMATORY BOWEL DISEASE [None]
  - INSOMNIA [None]
  - IRRITABLE BOWEL SYNDROME [None]
  - LIVER FUNCTION TEST ABNORMAL [None]
  - OSTEOARTHRITIS [None]
  - PANIC DISORDER [None]
  - PROCTITIS [None]
  - ROTATOR CUFF SYNDROME [None]
  - STAPHYLOCOCCAL IMPETIGO [None]
  - SUICIDAL IDEATION [None]
